FAERS Safety Report 21529327 (Version 1)
Quarter: 2022Q4

REPORT INFORMATION
  Report Type: Spontaneous
  Country: US (occurrence: US)
  Receive Date: 20221031
  Receipt Date: 20221031
  Transmission Date: 20230112
  Serious: Yes (Death, Life-Threatening, Hospitalization, Other)
  Sender: FDA-Public Use
  Company Number: US-AMGEN-USASP2022185911

PATIENT

DRUGS (10)
  1. BEVACIZUMAB [Suspect]
     Active Substance: BEVACIZUMAB
     Indication: Appendix cancer
     Dosage: UNK
     Route: 033
  2. BEVACIZUMAB [Suspect]
     Active Substance: BEVACIZUMAB
     Indication: Adenocarcinoma
  3. FLUOROURACIL [Concomitant]
     Active Substance: FLUOROURACIL
     Indication: Adenocarcinoma
     Dosage: UNK
     Route: 033
  4. FLUOROURACIL [Concomitant]
     Active Substance: FLUOROURACIL
     Indication: Appendix cancer
  5. OXALIPLATIN [Concomitant]
     Active Substance: OXALIPLATIN
     Indication: Adenocarcinoma
     Dosage: UNK
     Route: 033
  6. OXALIPLATIN [Concomitant]
     Active Substance: OXALIPLATIN
     Indication: Appendix cancer
  7. IRINOTECAN [Concomitant]
     Active Substance: IRINOTECAN
     Indication: Adenocarcinoma
     Dosage: UNK
     Route: 033
  8. IRINOTECAN [Concomitant]
     Active Substance: IRINOTECAN
     Indication: Appendix cancer
  9. CAPECITABINE EG [Concomitant]
     Indication: Adenocarcinoma
     Dosage: UNK
     Route: 033
  10. CAPECITABINE EG [Concomitant]
     Indication: Appendix cancer

REACTIONS (5)
  - Death [Fatal]
  - Post procedural complication [Fatal]
  - Appendix cancer [Unknown]
  - Therapy partial responder [Unknown]
  - Off label use [Unknown]
